FAERS Safety Report 17048597 (Version 2)
Quarter: 2019Q4

REPORT INFORMATION
  Report Type: Spontaneous
  Country: PL (occurrence: PL)
  Receive Date: 20191119
  Receipt Date: 20191126
  Transmission Date: 20200122
  Serious: Yes (Other)
  Sender: FDA-Public Use
  Company Number: PL-009507513-1911POL004608

PATIENT
  Age: 57 Year
  Sex: Male
  Weight: 110 kg

DRUGS (3)
  1. PEMBROLIZUMAB. [Suspect]
     Active Substance: PEMBROLIZUMAB
     Indication: MALIGNANT MELANOMA
     Dosage: THERAPY ONGOING
     Route: 042
     Dates: start: 20171109
  2. HEMOFER PROLONGATUM [Suspect]
     Active Substance: FERROUS SULFATE ANHYDROUS
     Indication: MALIGNANT MELANOMA
     Dosage: DOSE: 1 TABLET, THERAPY ONGOING
     Route: 048
     Dates: start: 20180412
  3. NEOPARIN [Suspect]
     Active Substance: ENOXAPARIN SODIUM
     Indication: MALIGNANT MELANOMA
     Dosage: THERAPY ONGOING
     Route: 058
     Dates: start: 20180731

REACTIONS (1)
  - Chronic lymphocytic leukaemia [Unknown]
